FAERS Safety Report 7412807-7 (Version None)
Quarter: 2011Q2

REPORT INFORMATION
  Report Type: 
  Country: None (occurrence: None)
  Receive Date: 20110413
  Receipt Date: 20110211
  Transmission Date: 20111010
  Serious: Yes (Hospitalization, Other)
  Sender: FDA-Public Use
  Company Number: B0699823A

PATIENT
  Sex: Female
  Weight: 70 kg

DRUGS (13)
  1. REDOMEX [Concomitant]
     Dates: start: 20060501, end: 20080901
  2. TAMSULOSIN HYDROCHLORIDE [Concomitant]
     Indication: DYSURIA
     Dates: start: 20070901, end: 20080301
  3. MOVIPREP [Concomitant]
     Indication: CONSTIPATION
     Route: 065
     Dates: start: 20080301
  4. REQUIP [Suspect]
     Dosage: 15MG PER DAY
     Route: 065
     Dates: start: 20090501
  5. MOTILIUM [Concomitant]
     Indication: NAUSEA
     Route: 065
     Dates: start: 20060201, end: 20061201
  6. OMEPRAZOLE [Concomitant]
     Dosage: 20MG PER DAY
     Route: 065
     Dates: start: 20080301
  7. VOLTAREN [Concomitant]
  8. AZILECT [Concomitant]
     Indication: PARKINSON'S DISEASE
     Dosage: 1MG PER DAY
     Route: 065
     Dates: start: 20080401, end: 20080901
  9. IMMUNOSUPPRESSIVE [Concomitant]
  10. PROLOPA [Concomitant]
     Indication: PARKINSON'S DISEASE
     Dosage: 125MG PER DAY
     Route: 065
     Dates: start: 20080301
  11. REQUIP [Suspect]
     Indication: PARKINSON'S DISEASE
     Dosage: 15MG PER DAY
     Route: 065
     Dates: start: 20060201, end: 20090101
  12. MIRAPEXIN [Concomitant]
     Indication: PARKINSON'S DISEASE
     Dosage: .7MG THREE TIMES PER DAY
     Route: 065
     Dates: start: 20090101, end: 20090501
  13. LIVIAL [Concomitant]

REACTIONS (4)
  - NEPHROTIC SYNDROME [None]
  - PROTEINURIA [None]
  - OEDEMA PERIPHERAL [None]
  - DYSPEPSIA [None]
